FAERS Safety Report 7441654-5 (Version None)
Quarter: 2011Q2

REPORT INFORMATION
  Report Type: 
  Country: None (occurrence: None)
  Receive Date: 20110418
  Receipt Date: 20110405
  Transmission Date: 20111010
  Serious: Yes (Other)
  Sender: FDA-Public Use
  Company Number: B0712391A

PATIENT
  Age: 65 Year
  Sex: 0

DRUGS (1)
  1. MELPHALAN HYDROCHLORIDE [Suspect]
     Indication: LIGHT CHAIN DISEASE
     Dosage: 140 MG/M2 /

REACTIONS (2)
  - MUCOSAL INFLAMMATION [None]
  - HYPERURICAEMIA [None]
